FAERS Safety Report 4893546-3 (Version None)
Quarter: 2005Q4

REPORT INFORMATION
  Report Type: 
  Country: None (occurrence: None)
  Receive Date: 20051223
  Receipt Date: 20050601
  Transmission Date: 20060501
  Serious: Yes (Hospitalization)
  Sender: FDA-Public Use
  Company Number: PHEH2005US06241

PATIENT
  Age: 23 Year
  Sex: Male

DRUGS (5)
  1. CLOZARIL [Suspect]
     Indication: SCHIZOAFFECTIVE DISORDER
     Dosage: 200MG, QAM, 250MG, QHS, ORAL
     Route: 048
     Dates: start: 20040101, end: 20050531
  2. TOPAMAX [Concomitant]
  3. HALDOL [Concomitant]
  4. COGENTIN [Concomitant]
  5. DDAVP (DESMOPRESSIN ACETATE) [Concomitant]

REACTIONS (4)
  - BLOOD ELECTROLYTES ABNORMAL [None]
  - BLOOD PH DECREASED [None]
  - DIABETES MELLITUS [None]
  - DIABETIC KETOACIDOSIS [None]
